FAERS Safety Report 4922626-9 (Version None)
Quarter: 2006Q1

REPORT INFORMATION
  Report Type: 
  Country: None (occurrence: None)
  Receive Date: 20060224
  Receipt Date: 20060215
  Transmission Date: 20060701
  Serious: Yes (Death)
  Sender: FDA-Public Use
  Company Number: JP-JNJFOC-20060202129

PATIENT
  Age: 51 Year
  Sex: Male

DRUGS (7)
  1. RISPERDAL [Suspect]
     Route: 048
  2. RISPERDAL [Suspect]
     Route: 048
  3. RISPERDAL [Suspect]
     Route: 048
  4. RISPERDAL [Suspect]
     Indication: DRUG USE FOR UNKNOWN INDICATION
     Route: 048
  5. HALOPERIDOL [Suspect]
     Indication: DRUG USE FOR UNKNOWN INDICATION
  6. SULTOPRIDE HYDROCHLORIDE [Suspect]
     Route: 048
  7. SULTOPRIDE HYDROCHLORIDE [Suspect]
     Route: 048

REACTIONS (4)
  - AGGRESSION [None]
  - EMPHYSEMA [None]
  - RESPIRATORY FAILURE [None]
  - RESTLESSNESS [None]
